FAERS Safety Report 8578522-1 (Version None)
Quarter: 2012Q3

REPORT INFORMATION
  Report Type: 
  Country: None (occurrence: None)
  Receive Date: 20120731
  Receipt Date: 20120731
  Transmission Date: 20120928
  Serious: Yes (Hospitalization)
  Sender: FDA-Public Use
  Company Number: None

PATIENT
  Age: 49 Year
  Sex: Female
  Weight: 75.2971 kg

DRUGS (8)
  1. MELPHALAN HYDROCHLORIDE [Suspect]
     Indication: MULTIPLE MYELOMA
     Dosage: 164MG X2 DAYS
     Dates: start: 20100701
  2. LEVOFLOXACIN [Concomitant]
  3. PROCHLORPERAZINE MALEATE [Concomitant]
  4. MEDROXYPROGESTERONE [Concomitant]
  5. OMEPRAZOLE [Concomitant]
  6. VALACYCLOVIR HYDROCHLORIDE [Concomitant]
  7. FLUCONAZOLE [Concomitant]
  8. OXYCODONE HCL [Concomitant]

REACTIONS (1)
  - FEBRILE NEUTROPENIA [None]
